FAERS Safety Report 14696017 (Version 1)
Quarter: 2018Q1

REPORT INFORMATION
  Report Type: Report from Study
  Country: DE (occurrence: DE)
  Receive Date: 20180329
  Receipt Date: 20180329
  Transmission Date: 20180509
  Serious: Yes (Hospitalization)
  Sender: FDA-Public Use
  Company Number: DE-BIOGEN-2018BI00541922

PATIENT
  Age: 53 Year
  Sex: Female
  Weight: 120 kg

DRUGS (20)
  1. CLEXANE [Concomitant]
     Active Substance: ENOXAPARIN SODIUM
     Route: 058
     Dates: start: 20170726, end: 20170801
  2. URBASON [Concomitant]
     Active Substance: METHYLPREDNISOLONE
     Route: 042
     Dates: start: 20170726, end: 20170801
  3. ACETYLSALICYLIC ACID [Concomitant]
     Active Substance: ASPIRIN
     Indication: BRAIN STEM INFARCTION
     Route: 048
     Dates: start: 201310
  4. L-THYROXINE [Concomitant]
     Active Substance: LEVOTHYROXINE
     Indication: THYROID DISORDER
     Route: 048
     Dates: start: 201105
  5. PANTOZOL [Concomitant]
     Active Substance: PANTOPRAZOLE SODIUM
     Route: 048
     Dates: start: 20170313, end: 20170318
  6. TEGRETAL [Concomitant]
     Active Substance: CARBAMAZEPINE
     Indication: EPILEPSY
     Route: 048
     Dates: start: 200806
  7. CLEXANE [Concomitant]
     Active Substance: ENOXAPARIN SODIUM
     Indication: THROMBOSIS PROPHYLAXIS
     Route: 058
     Dates: start: 20161019, end: 20161023
  8. PANTOZOL [Concomitant]
     Active Substance: PANTOPRAZOLE SODIUM
     Indication: PROPHYLAXIS
     Route: 048
     Dates: start: 20161019, end: 20161023
  9. CIPRALEX [Concomitant]
     Active Substance: ESCITALOPRAM OXALATE
     Indication: DEPRESSION
     Route: 048
     Dates: start: 201510
  10. PANTOZOL [Concomitant]
     Active Substance: PANTOPRAZOLE SODIUM
     Route: 048
     Dates: start: 2014
  11. TYSABRI [Suspect]
     Active Substance: NATALIZUMAB
     Indication: MULTIPLE SCLEROSIS
     Route: 042
     Dates: start: 20140108, end: 20170111
  12. PANTOZOL [Concomitant]
     Active Substance: PANTOPRAZOLE SODIUM
     Route: 048
     Dates: start: 20170726, end: 20170801
  13. UBRETID [Concomitant]
     Active Substance: DISTIGMINE BROMIDE
     Indication: NEUROGENIC BLADDER
     Route: 048
     Dates: start: 201511
  14. ATACAND [Concomitant]
     Active Substance: CANDESARTAN CILEXETIL
     Indication: HYPERTENSION
     Route: 048
     Dates: start: 200612
  15. CARMEN [Concomitant]
     Active Substance: LERCANIDIPINE
     Indication: HYPERTENSION
     Route: 048
     Dates: start: 201511
  16. SIMVAHEXAL [Concomitant]
     Active Substance: SIMVASTATIN
     Indication: BRAIN STEM INFARCTION
     Route: 048
     Dates: start: 201310
  17. CLEXANE [Concomitant]
     Active Substance: ENOXAPARIN SODIUM
     Route: 058
     Dates: start: 20170313, end: 20170318
  18. URBASON [Concomitant]
     Active Substance: METHYLPREDNISOLONE
     Indication: MULTIPLE SCLEROSIS RELAPSE
     Route: 042
     Dates: start: 20161019, end: 20161023
  19. URBASON [Concomitant]
     Active Substance: METHYLPREDNISOLONE
     Route: 042
     Dates: start: 20170313, end: 20170318
  20. HYDROCHLOROTHIAZIDE. [Concomitant]
     Active Substance: HYDROCHLOROTHIAZIDE
     Indication: HYPERTENSION
     Route: 048
     Dates: start: 2014

REACTIONS (1)
  - Multiple sclerosis relapse [Recovered/Resolved with Sequelae]

NARRATIVE: CASE EVENT DATE: 201703
